FAERS Safety Report 5028411-4 (Version None)
Quarter: 2006Q2

REPORT INFORMATION
  Report Type: 
  Country: None (occurrence: None)
  Receive Date: 20060617
  Receipt Date: 20060526
  Transmission Date: 20061013
  Serious: Yes (Other)
  Sender: FDA-Public Use
  Company Number: US-AVENTIS-200614736US

PATIENT
  Sex: Female

DRUGS (10)
  1. LANTUS [Suspect]
     Indication: DIABETES MELLITUS NON-INSULIN-DEPENDENT
     Dosage: DOSE UNIT: UNITS
     Dates: start: 20060525
  2. OPTICLIK (INSULIN INJECTION PEN) [Suspect]
     Indication: DIABETES MELLITUS NON-INSULIN-DEPENDENT
     Dates: start: 20060525, end: 20060528
  3. APIDRA [Concomitant]
     Dosage: DOSE: UNKNOWN
  4. CLONIDINE [Concomitant]
     Dosage: DOSE: UNKNOWN
  5. PAXIL [Concomitant]
     Dosage: DOSE: UNKNOWN
  6. LISINOPRIL [Concomitant]
     Dosage: DOSE: UNKNOWN
  7. HYDROCHLOROTHIAZIDE [Concomitant]
     Dosage: DOSE: UNKNOWN
  8. PERCOCET [Concomitant]
     Dosage: DOSE: UNKNOWN
  9. SOMA [Concomitant]
     Dosage: DOSE: UNKNOWN
  10. FUROSEMIDE [Concomitant]
     Dosage: DOSE: UNKNOWN

REACTIONS (1)
  - HYPERGLYCAEMIA [None]
